FAERS Safety Report 9786197 (Version 1)
Quarter: 2013Q4

REPORT INFORMATION
  Report Type: Spontaneous
  Country: TW (occurrence: TW)
  Receive Date: 20131227
  Receipt Date: 20131227
  Transmission Date: 20140711
  Serious: Yes (Other)
  Sender: FDA-Public Use
  Company Number: TW-BRISTOL-MYERS SQUIBB COMPANY-19939610

PATIENT
  Sex: Female

DRUGS (1)
  1. BARACLUDE [Suspect]
     Route: 048

REACTIONS (3)
  - Suicidal ideation [Unknown]
  - Depression [Unknown]
  - Anxiety [Unknown]
